FAERS Safety Report 7018568-8 (Version None)
Quarter: 2010Q3

REPORT INFORMATION
  Report Type: 
  Country: None (occurrence: None)
  Receive Date: 20100928
  Receipt Date: 20100922
  Transmission Date: 20110219
  Serious: Yes (Hospitalization, Other)
  Sender: FDA-Public Use
  Company Number: US-ABBOTT-10P-163-0672275-00

PATIENT
  Sex: Female
  Weight: 85.806 kg

DRUGS (16)
  1. HUMIRA [Suspect]
     Indication: CROHN'S DISEASE
     Dates: start: 20071201
  2. HUMIRA [Suspect]
     Indication: ARTHRITIS
  3. HUMIRA [Suspect]
     Indication: PSORIASIS
  4. PREDNISONE [Concomitant]
     Indication: CROHN'S DISEASE
  5. PREDNISONE [Concomitant]
     Indication: ARTHRITIS
  6. AMBIEN [Concomitant]
     Indication: SLEEP DISORDER
  7. OXYCONTIN [Concomitant]
     Indication: ARTHRITIS
  8. FOLIC ACID [Concomitant]
     Indication: VITAMIN SUPPLEMENTATION
  9. CYCLOBENZA [Concomitant]
     Indication: ARTHRITIS
  10. ABILIFY [Concomitant]
     Indication: DEPRESSION
  11. ADDERALL XR 10 [Concomitant]
     Indication: ENERGY INCREASED
  12. PROTONIX [Concomitant]
     Indication: GASTROOESOPHAGEAL REFLUX DISEASE
  13. VICODIN [Concomitant]
     Indication: ARTHRITIS
  14. ATENOLOL [Concomitant]
     Indication: HYPERTENSION
  15. VITAMIN TAB [Concomitant]
     Indication: VITAMIN SUPPLEMENTATION
  16. VITAMIN B-12 [Concomitant]
     Indication: VITAMIN SUPPLEMENTATION

REACTIONS (10)
  - ABDOMINAL PAIN [None]
  - CANDIDIASIS [None]
  - DIARRHOEA [None]
  - DYSURIA [None]
  - GASTROINTESTINAL MOTILITY DISORDER [None]
  - NAUSEA [None]
  - OVARIAN CYST [None]
  - URINARY TRACT INFECTION [None]
  - VOMITING [None]
  - WEIGHT DECREASED [None]
